FAERS Safety Report 9519653 (Version 1)
Quarter: 2013Q1

REPORT INFORMATION
  Report Type: Spontaneous
  Country: US (occurrence: None)
  Receive Date: 20130305
  Receipt Date: 20130305
  Transmission Date: 20140127
  Serious: Yes (Other)
  Sender: FDA-Public Use
  Company Number: 163-21880-12082593

PATIENT
  Age: 67 Year
  Sex: Male
  Weight: 83.01 kg

DRUGS (18)
  1. REVLIMID (LENALIDOMIDE) (25 MILLIGRAM, CAPSULES) [Suspect]
     Indication: PLASMA CELL MYELOMA
     Route: 048
     Dates: start: 20111128, end: 2012
  2. WARFARIN [Concomitant]
  3. ATENOLOL [Concomitant]
  4. FINASTERIDE [Concomitant]
  5. RYTHMOL (PROPAFENONE) [Concomitant]
  6. SIMVASTATIN [Concomitant]
  7. TAMSULOSIN HCL (TAMSULOSIN HYDROCHLORIDE) [Concomitant]
  8. METOPROLOL SUCCINATE [Concomitant]
  9. VALACYCLOVIR HCL (VALACICLOVIR HYDROCHLORIDE) [Concomitant]
  10. ZOMETA (ZOLEDRONIC ACID [Concomitant]
  11. CALCIUM [Concomitant]
  12. DAPSONE [Concomitant]
  13. LORAZEPAM [Concomitant]
  14. METOCLOPRAMIDE [Concomitant]
  15. MIRTAZAPINE [Concomitant]
  16. POTASSIUM CHLORIDE [Concomitant]
  17. VELCADE (BORTEZOMIB) [Concomitant]
  18. DEXAMETHASONE [Concomitant]

REACTIONS (1)
  - Deep vein thrombosis [None]
